FAERS Safety Report 15350641 (Version 1)
Quarter: 2018Q3

REPORT INFORMATION
  Report Type: Spontaneous
  Country: JP (occurrence: JP)
  Receive Date: 20180905
  Receipt Date: 20180905
  Transmission Date: 20181010
  Serious: Yes (Death, Life-Threatening, Hospitalization, Other)
  Sender: FDA-Public Use
  Company Number: JP-CONCORDIA PHARMACEUTICALS INC.-E2B_00016527

PATIENT
  Age: 80 Year
  Sex: Female

DRUGS (3)
  1. PREDNISOLONE. [Suspect]
     Active Substance: PREDNISOLONE
     Dosage: AFTER RECEIVING AN INITIAL DOSE (1 MG/KG DAILY) FOR 4 WEEKS, THE PREDNISOLONE DOSE WAS GRADUALLY TAP
  2. PREDNISOLONE. [Suspect]
     Active Substance: PREDNISOLONE
     Indication: FACTOR VIII DEFICIENCY
  3. PREDNISOLONE. [Suspect]
     Active Substance: PREDNISOLONE
     Indication: RHEUMATOID ARTHRITIS

REACTIONS (12)
  - Respiratory failure [Unknown]
  - Thrombosis [Fatal]
  - Von Willebrand^s factor antigen increased [Unknown]
  - Arteriosclerosis [Unknown]
  - Colitis ischaemic [Unknown]
  - Hypoperfusion [Fatal]
  - Metabolic acidosis [Unknown]
  - Depressed level of consciousness [Unknown]
  - Infarction [Unknown]
  - Multiple organ dysfunction syndrome [Fatal]
  - Septic shock [Unknown]
  - Respiratory acidosis [Unknown]
